FAERS Safety Report 7079463 (Version 3)
Quarter: 2017Q1

REPORT INFORMATION
  Report Type: Spontaneous
  Country: JP (occurrence: JP)
  Receive Date: 20090812
  Receipt Date: 20170213
  Transmission Date: 20170429
  Serious: Yes (Other)
  Sender: FDA-Public Use
  Company Number: JP-BRISTOL-MYERS SQUIBB COMPANY-14731020

PATIENT
  Age: 80 Year
  Sex: Male

DRUGS (3)
  1. TS-1 [Concomitant]
     Active Substance: GIMERACIL\OTERACIL\TEGAFUR
     Indication: GASTRIC CANCER
     Dosage: UNK
     Route: 048
  2. WARFARIN POTASSIUM [Suspect]
     Active Substance: WARFARIN POTASSIUM
     Indication: ATRIAL FIBRILLATION
     Dosage: UNK
     Route: 048
  3. TAXOL [Suspect]
     Active Substance: PACLITAXEL
     Indication: GASTRIC CANCER
     Dosage: ON DAY 1, 8, 15  STOPPED AND RESTARTED WITH DECREASED DOSE,DOSEREDUCED TO 50MG/M2
     Route: 041

REACTIONS (1)
  - Prothrombin time ratio increased [Unknown]
